FAERS Safety Report 7528989-2 (Version None)
Quarter: 2011Q2

REPORT INFORMATION
  Report Type: 
  Country: None (occurrence: None)
  Receive Date: 20110520
  Receipt Date: 20110329
  Transmission Date: 20111010
  Serious: Yes (Other)
  Sender: FDA-Public Use
  Company Number: 030199

PATIENT

DRUGS (1)
  1. LACOSAMIDE [Suspect]

REACTIONS (2)
  - SUICIDAL IDEATION [None]
  - RASH [None]
